FAERS Safety Report 14718526 (Version 1)
Quarter: 2018Q2

REPORT INFORMATION
  Report Type: Spontaneous
  Country: CA (occurrence: CA)
  Receive Date: 20180404
  Receipt Date: 20180404
  Transmission Date: 20180711
  Serious: Yes (Death)
  Sender: FDA-Public Use
  Company Number: CA-TEVA-2018-CA-875799

PATIENT
  Age: 59 Year
  Sex: Male
  Weight: 53 kg

DRUGS (1)
  1. FENTANYL. [Suspect]
     Active Substance: FENTANYL
     Route: 065

REACTIONS (2)
  - Toxicologic test abnormal [Fatal]
  - Toxicity to various agents [Fatal]
